FAERS Safety Report 23989515 (Version 2)
Quarter: 2024Q3

REPORT INFORMATION
  Report Type: Spontaneous
  Country: IT (occurrence: IT)
  Receive Date: 20240619
  Receipt Date: 20240703
  Transmission Date: 20241016
  Serious: Yes (Hospitalization, Other)
  Sender: TEVA
  Company Number: IT-TEVA-VS-3209186

PATIENT
  Age: 71 Year
  Sex: Female

DRUGS (3)
  1. CARBOPLATIN [Suspect]
     Active Substance: CARBOPLATIN
     Indication: Non-small cell lung cancer metastatic
     Route: 065
  2. DURVALUMAB [Suspect]
     Active Substance: DURVALUMAB
     Indication: Non-small cell lung cancer metastatic
     Route: 065
     Dates: start: 202104, end: 2021
  3. ETOPOSIDE [Suspect]
     Active Substance: ETOPOSIDE
     Indication: Non-small cell lung cancer metastatic
     Route: 065

REACTIONS (2)
  - Encephalitis [Unknown]
  - Drug ineffective [Unknown]

NARRATIVE: CASE EVENT DATE: 20210101
